FAERS Safety Report 22361676 (Version 1)
Quarter: 2023Q2

REPORT INFORMATION
  Report Type: Spontaneous
  Country: US (occurrence: None)
  Receive Date: 20230524
  Receipt Date: 20230524
  Transmission Date: 20230722
  Serious: Yes (Hospitalization)
  Sender: FDA-Public Use
  Company Number: None

PATIENT
  Age: 57 Year
  Sex: Male

DRUGS (2)
  1. AMBRISENTAN [Suspect]
     Active Substance: AMBRISENTAN
     Indication: Pulmonary arterial hypertension
     Dosage: FREQUENCY : DAILY;?
     Route: 048
     Dates: start: 20230503
  2. REMODULIN [Suspect]
     Active Substance: TREPROSTINIL

REACTIONS (4)
  - Cough [None]
  - Dyspnoea [None]
  - Chest pain [None]
  - Oxygen saturation decreased [None]

NARRATIVE: CASE EVENT DATE: 20230522
